FAERS Safety Report 25250193 (Version 1)
Quarter: 2025Q2

REPORT INFORMATION
  Report Type: Spontaneous
  Country: FR (occurrence: FR)
  Receive Date: 20250429
  Receipt Date: 20250429
  Transmission Date: 20250716
  Serious: Yes (Other)
  Sender: AUROBINDO
  Company Number: FR-AFSSAPS-AN2025000491

PATIENT
  Age: 28 Year
  Sex: Male
  Weight: 74 kg

DRUGS (8)
  1. LOXAPINE [Suspect]
     Active Substance: LOXAPINE
     Indication: Autism spectrum disorder
     Dosage: 200 MILLIGRAM, ONCE A DAY
     Route: 048
  2. DIAZEPAM [Suspect]
     Active Substance: DIAZEPAM
     Indication: Autism spectrum disorder
     Dosage: 30 MILLIGRAM, ONCE A DAY
     Route: 048
  3. RISPERIDONE [Suspect]
     Active Substance: RISPERIDONE
     Indication: Autism spectrum disorder
     Dosage: 4 MILLIGRAM, ONCE A DAY
     Route: 048
  4. MELATONIN [Suspect]
     Active Substance: MELATONIN
     Indication: Autism spectrum disorder
     Dosage: 1.9 MILLIGRAM, ONCE A DAY
     Route: 048
     Dates: start: 20240325
  5. METHYLPHENIDATE [Suspect]
     Active Substance: METHYLPHENIDATE
     Indication: Autism spectrum disorder
     Dosage: 40 MILLIGRAM, ONCE A DAY
     Route: 048
     Dates: start: 20240327
  6. TRIMEPRAZINE [Suspect]
     Active Substance: TRIMEPRAZINE
     Indication: Autism spectrum disorder
     Dosage: 40 MILLIGRAM, ONCE A DAY
     Route: 048
  7. VALPROATE SODIUM [Suspect]
     Active Substance: VALPROATE SODIUM
     Indication: Autism spectrum disorder
     Dosage: 1500 MILLIGRAM, ONCE A DAY
     Route: 048
  8. TRIHEXYPHENIDYL [Suspect]
     Active Substance: TRIHEXYPHENIDYL
     Indication: Autism spectrum disorder
     Dosage: 5 MILLIGRAM, ONCE A DAY
     Route: 048
     Dates: start: 20240326

REACTIONS (2)
  - Neutropenia [Not Recovered/Not Resolved]
  - Platelet count decreased [Not Recovered/Not Resolved]

NARRATIVE: CASE EVENT DATE: 20250325
